FAERS Safety Report 20513853 (Version 1)
Quarter: 2022Q1

REPORT INFORMATION
  Report Type: Report from Study
  Country: US (occurrence: US)
  Receive Date: 20220224
  Receipt Date: 20220224
  Transmission Date: 20220423
  Serious: Yes (Other)
  Sender: FDA-Public Use
  Company Number: US-NOVARTISPH-NVSC2022US036996

PATIENT
  Sex: Female

DRUGS (1)
  1. COSENTYX [Suspect]
     Active Substance: SECUKINUMAB
     Indication: Product used for unknown indication
     Dosage: 150 MG, QW
     Route: 058
     Dates: start: 20220119

REACTIONS (6)
  - Haemorrhage [Unknown]
  - Condition aggravated [Unknown]
  - Rash [Unknown]
  - Alopecia [Unknown]
  - Seborrhoeic dermatitis [Unknown]
  - Skin fissures [Unknown]
